FAERS Safety Report 5381585-8 (Version None)
Quarter: 2007Q2

REPORT INFORMATION
  Report Type: 
  Country: None (occurrence: None)
  Receive Date: 20070629
  Receipt Date: 20070312
  Transmission Date: 20071010
  Serious: Yes (Other)
  Sender: FDA-Public Use
  Company Number: A03200702111

PATIENT
  Sex: Male

DRUGS (3)
  1. AMBIEN [Suspect]
     Indication: INSOMNIA
     Dosage: 1 DF PRN-ORAL
     Route: 048
     Dates: end: 20060716
  2. AMBIEN [Suspect]
     Indication: INSOMNIA
     Dosage: 10 MG PRN-ORAL
     Route: 048
     Dates: start: 20031101
  3. OXYCODONE HCL [Concomitant]

REACTIONS (6)
  - AMNESIA [None]
  - CONFUSIONAL STATE [None]
  - EATING DISORDER [None]
  - FEELING ABNORMAL [None]
  - INCOHERENT [None]
  - SLEEP WALKING [None]
